FAERS Safety Report 8825544 (Version 1)
Quarter: 2012Q4

REPORT INFORMATION
  Report Type: 
  Country: FR (occurrence: FR)
  Receive Date: 20121004
  Receipt Date: 20121004
  Transmission Date: 20130627
  Serious: Yes (Hospitalization, Other)
  Sender: FDA-Public Use
  Company Number: FR-JNJFOC-20120911978

PATIENT
  Age: 17 Year
  Sex: Female

DRUGS (4)
  1. ITRACONAZOLE [Suspect]
     Indication: CYSTIC FIBROSIS
     Route: 065
  2. AZITHROMYCIN [Interacting]
     Indication: CYSTIC FIBROSIS
     Route: 065
  3. SALBUTAMOL [Suspect]
     Indication: CYSTIC FIBROSIS
     Route: 065
  4. METHYLPREDNISOLONE [Interacting]
     Indication: ACUTE RESPIRATORY DISTRESS SYNDROME
     Route: 042

REACTIONS (4)
  - Drug interaction [Unknown]
  - Acute respiratory distress syndrome [Unknown]
  - Hypertension [Recovered/Resolved]
  - Bradycardia [Recovered/Resolved]
